FAERS Safety Report 25310907 (Version 1)
Quarter: 2025Q2

REPORT INFORMATION
  Report Type: Report from Study
  Country: US (occurrence: US)
  Receive Date: 20250514
  Receipt Date: 20250514
  Transmission Date: 20250717
  Serious: No
  Sender: SUNOVION
  Company Number: US-SUMITOMO PHARMA SWITZERLAND GMBH-2025SPA004899

PATIENT

DRUGS (20)
  1. ORGOVYX [Suspect]
     Active Substance: RELUGOLIX
     Indication: Prostate cancer
     Dosage: 120 MG, QD
     Route: 048
     Dates: start: 20230816
  2. CALTRATE [Concomitant]
     Active Substance: CALCIUM CARBONATE
     Route: 065
  3. CELECOXIB [Concomitant]
     Active Substance: CELECOXIB
     Route: 065
  4. CIALIS [Concomitant]
     Active Substance: TADALAFIL
     Route: 065
  5. DOXAZOSIN [Concomitant]
     Active Substance: DOXAZOSIN MESYLATE
     Route: 065
  6. ECOTRIN [Concomitant]
     Active Substance: ASPIRIN
     Route: 065
  7. ERLEADA [Concomitant]
     Active Substance: APALUTAMIDE
     Route: 065
  8. FERROUS SULFATE [Concomitant]
     Active Substance: FERROUS SULFATE
     Route: 065
  9. FLUTICASONE [Concomitant]
     Active Substance: FLUTICASONE
     Route: 065
  10. FOSINOPRIL [Concomitant]
     Active Substance: FOSINOPRIL
     Route: 065
  11. GABAPENTIN [Concomitant]
     Active Substance: GABAPENTIN
     Route: 065
  12. HYDROCHLOROTHIAZIDE [Concomitant]
     Active Substance: HYDROCHLOROTHIAZIDE
     Route: 065
  13. LEVOTHYROXINE [Concomitant]
     Active Substance: LEVOTHYROXINE
     Route: 065
  14. LIPITOR [Concomitant]
     Active Substance: ATORVASTATIN CALCIUM
     Route: 065
  15. METAMUCIL [Concomitant]
     Active Substance: PLANTAGO SEED
     Route: 065
  16. PANTOPRAZOLE [Concomitant]
     Active Substance: PANTOPRAZOLE
     Route: 065
  17. POTASSIUM [Concomitant]
     Active Substance: POTASSIUM
     Route: 065
  18. VITAMINS NOS [Concomitant]
     Active Substance: VITAMINS
     Route: 065
  19. SF 5000 PLUS [Concomitant]
     Active Substance: SODIUM FLUORIDE
     Route: 065
  20. VITAMIN C [Concomitant]
     Active Substance: ASCORBIC ACID
     Route: 065

REACTIONS (1)
  - Hot flush [Unknown]
